FAERS Safety Report 16064256 (Version 1)
Quarter: 2019Q1

REPORT INFORMATION
  Report Type: Report from Study
  Country: US (occurrence: US)
  Receive Date: 20190312
  Receipt Date: 20190312
  Transmission Date: 20190418
  Serious: Yes (Hospitalization)
  Sender: FDA-Public Use
  Company Number: US-ACTELION-A-NJ2018-176668

PATIENT
  Age: 87 Year
  Sex: Female

DRUGS (4)
  1. UPTRAVI [Suspect]
     Active Substance: SELEXIPAG
     Indication: PULMONARY ARTERIAL HYPERTENSION
     Dosage: 600 MCG, BID
     Route: 048
     Dates: start: 20170831
  2. SILDENAFIL. [Concomitant]
     Active Substance: SILDENAFIL
     Dosage: 20 UNK, TID
     Dates: start: 20180314
  3. OPSUMIT [Suspect]
     Active Substance: MACITENTAN
     Indication: PULMONARY ARTERIAL HYPERTENSION
     Dosage: 10 MG, QD
     Route: 048
     Dates: start: 20180606
  4. OXYGEN. [Concomitant]
     Active Substance: OXYGEN

REACTIONS (8)
  - Dyspnoea [Recovered/Resolved]
  - Pulmonary oedema [Recovered/Resolved]
  - Oxygen consumption increased [Unknown]
  - Headache [Recovered/Resolved]
  - Joint noise [Recovered/Resolved]
  - Dyspnoea exertional [Recovered/Resolved]
  - Pain in extremity [Recovered/Resolved]
  - Tooth infection [Recovering/Resolving]

NARRATIVE: CASE EVENT DATE: 2018
